FAERS Safety Report 22168741 (Version 1)
Quarter: 2023Q2

REPORT INFORMATION
  Report Type: Spontaneous
  Country: ES (occurrence: ES)
  Receive Date: 20230403
  Receipt Date: 20230403
  Transmission Date: 20230722
  Serious: Yes (Life-Threatening, Hospitalization)
  Sender: FDA-Public Use
  Company Number: None

PATIENT
  Age: 78 Year
  Sex: Female

DRUGS (4)
  1. KEYTRUDA [Suspect]
     Active Substance: PEMBROLIZUMAB
     Indication: Adenocarcinoma gastric
     Dosage: 200 MILLIGRAM, CYCLE
     Route: 042
     Dates: start: 20221108, end: 20230221
  2. DOCETAXEL [Concomitant]
     Active Substance: DOCETAXEL
     Indication: Adenocarcinoma gastric
     Dosage: 64.4 MILIGRAMOS (40 MG/M2) REDUCCI?N 80% DEL TOTAL
     Route: 042
     Dates: start: 20220728, end: 20220907
  3. OXALIPLATIN [Concomitant]
     Active Substance: OXALIPLATIN
     Indication: Adenocarcinoma gastric
     Dosage: 136.85 MILIGRAMOS (88 MG/ML)
     Route: 042
     Dates: start: 20220728, end: 20220907
  4. FLUOROURACIL [Concomitant]
     Active Substance: FLUOROURACIL
     Indication: Adenocarcinoma gastric
     Dosage: 4186 MILIGRAMOS (2600 MG/ML)
     Route: 042
     Dates: start: 20220728, end: 20220907

REACTIONS (2)
  - Respiratory failure [Recovered/Resolved]
  - Myasthenic syndrome [Recovering/Resolving]

NARRATIVE: CASE EVENT DATE: 20230301
